FAERS Safety Report 24137323 (Version 1)
Quarter: 2024Q3

REPORT INFORMATION
  Report Type: Report from Study
  Country: CA (occurrence: None)
  Receive Date: 20240725
  Receipt Date: 20240725
  Transmission Date: 20241017
  Serious: Yes (Other)
  Sender: ASTRAZENECA
  Company Number: 2024A089338

PATIENT
  Sex: Female

DRUGS (5)
  1. TEZSPIRE [Suspect]
     Active Substance: TEZEPELUMAB-EKKO
     Indication: Asthma
     Route: 058
     Dates: start: 20230112, end: 20240215
  2. PREDNISONE [Concomitant]
     Active Substance: PREDNISONE
  3. VENTOLIN [Concomitant]
     Active Substance: ALBUTEROL SULFATE
     Dosage: AS REQUIRED
  4. PULMICORT TURBUHALER [Concomitant]
     Active Substance: BUDESONIDE
     Dosage: 200 MCG 2 PUFFS 2X DAILY
  5. SYMBICORT [Concomitant]
     Active Substance: BUDESONIDE\FORMOTEROL FUMARATE DIHYDRATE
     Dosage: 200MCG - 2 PUFFS 2X DAILY

REACTIONS (4)
  - Vocal cord paralysis [Unknown]
  - Asthma [Unknown]
  - Drug ineffective [Unknown]
  - Feeling abnormal [Unknown]
